FAERS Safety Report 8125778-5 (Version None)
Quarter: 2012Q1

REPORT INFORMATION
  Report Type: 
  Country: None (occurrence: None)
  Receive Date: 20120209
  Receipt Date: 20120206
  Transmission Date: 20120608
  Serious: No
  Sender: FDA-Public Use
  Company Number: US-BAYER-2012-013010

PATIENT
  Age: 61 Year
  Sex: Female
  Weight: 68 kg

DRUGS (8)
  1. ELAVIL [Concomitant]
  2. MULTI-VITAMIN [Concomitant]
  3. FLOMAX [Concomitant]
  4. ALEVE (CAPLET) [Suspect]
     Dosage: 1TAB
     Route: 048
  5. TRAMADOL HCL [Concomitant]
  6. LYRICA [Concomitant]
  7. FIORICET [Concomitant]
  8. ACETAMINOPHEN [Concomitant]

REACTIONS (1)
  - NAUSEA [None]
